FAERS Safety Report 7197383-9 (Version None)
Quarter: 2010Q4

REPORT INFORMATION
  Report Type: 
  Country: None (occurrence: None)
  Receive Date: 20101227
  Receipt Date: 20101213
  Transmission Date: 20110411
  Serious: Yes (Other)
  Sender: FDA-Public Use
  Company Number: DE-JNJFOC-20101006685

PATIENT
  Sex: Male

DRUGS (3)
  1. PALEXIA [Suspect]
     Indication: INTERVERTEBRAL DISC OPERATION
     Route: 065
  2. NORSPAN [Concomitant]
     Indication: PROCEDURAL PAIN
  3. NORSPAN [Concomitant]

REACTIONS (1)
  - SUICIDAL IDEATION [None]
